FAERS Safety Report 5132193-5 (Version None)
Quarter: 2006Q4

REPORT INFORMATION
  Report Type: 
  Country: None (occurrence: None)
  Receive Date: 20061017
  Receipt Date: 20061009
  Transmission Date: 20070319
  Serious: Yes (Other)
  Sender: FDA-Public Use
  Company Number: 2006SP004086

PATIENT
  Age: 61 Year
  Sex: Female

DRUGS (8)
  1. CLARINEX [Suspect]
     Indication: HYPERSENSITIVITY
     Dosage: 5 MG; ONCE; PO
     Route: 048
     Dates: start: 20061009, end: 20061009
  2. WELLBURIN [Suspect]
     Indication: DEPRESSION
     Dosage: 100 MG; PO
     Route: 048
  3. ALLEGRA-D 12 HOUR [Suspect]
     Indication: HYPERSENSITIVITY
     Dosage: PO
     Route: 048
  4. ANASTROZOLE [Concomitant]
  5. OMEPRAZOLE [Concomitant]
  6. SIMVASTATIN [Concomitant]
  7. ZOLPIDEM TARTRATE [Concomitant]
  8. CLONAZEPAM [Concomitant]

REACTIONS (5)
  - DRUG INTERACTION [None]
  - DRY MOUTH [None]
  - FEELING ABNORMAL [None]
  - LIP DRY [None]
  - TARDIVE DYSKINESIA [None]
